FAERS Safety Report 12821950 (Version 1)
Quarter: 2016Q4

REPORT INFORMATION
  Report Type: Report from Study
  Country: US (occurrence: US)
  Receive Date: 20161006
  Receipt Date: 20161006
  Transmission Date: 20170207
  Serious: No
  Sender: FDA-Public Use
  Company Number: US-AMGEN-USASL2016026571

PATIENT
  Age: 63 Year
  Sex: Female

DRUGS (1)
  1. PROLIA [Suspect]
     Active Substance: DENOSUMAB
     Indication: OSTEOPOROSIS
     Dosage: UNK
     Route: 065
     Dates: start: 201508

REACTIONS (7)
  - Tooth disorder [Unknown]
  - Diarrhoea [Unknown]
  - Mastication disorder [Unknown]
  - Tooth extraction [Unknown]
  - Malnutrition [Unknown]
  - Vomiting [Unknown]
  - Malabsorption [Unknown]
